FAERS Safety Report 25437936 (Version 2)
Quarter: 2025Q3

REPORT INFORMATION
  Report Type: Spontaneous
  Country: US (occurrence: US)
  Receive Date: 20250616
  Receipt Date: 20250819
  Transmission Date: 20251020
  Serious: No
  Sender: KYOWA
  Company Number: US-KYOWAKIRIN-2025KK011138

PATIENT

DRUGS (12)
  1. CRYSVITA [Suspect]
     Active Substance: BUROSUMAB-TWZA
     Indication: Hereditary hypophosphataemic rickets
     Dosage: 90 MG, 1X/4 WEEKS
     Route: 058
     Dates: start: 20250520
  2. CRYSVITA [Suspect]
     Active Substance: BUROSUMAB-TWZA
     Dosage: 90 MG, 1X/4 WEEKS
     Route: 058
     Dates: start: 20250617
  3. CRYSVITA [Suspect]
     Active Substance: BUROSUMAB-TWZA
     Dosage: 90 MG, 1X/4 WEEKS
     Route: 058
     Dates: start: 20250715
  4. ROCALTROL [Concomitant]
     Active Substance: CALCITRIOL
     Indication: Product used for unknown indication
     Dosage: 2 CAPSULES (1 MCG CAPSULE)
     Route: 048
  5. NEURONTIN [Concomitant]
     Active Substance: GABAPENTIN
     Indication: Product used for unknown indication
     Dosage: 300 MG, TID
     Route: 048
  6. NORVASC [Concomitant]
     Active Substance: AMLODIPINE BESYLATE
     Indication: Blood pressure abnormal
     Dosage: 5 MG, QD
     Route: 048
  7. VITAMIN D2 [Concomitant]
     Active Substance: ERGOCALCIFEROL
     Indication: Product used for unknown indication
     Dosage: 1 DF, 1X/2 WEEKS
     Route: 048
  8. PHOSPHA 250 NEUTRAL [Concomitant]
     Active Substance: POTASSIUM PHOSPHATE, MONOBASIC\SODIUM PHOSPHATE, DIBASIC, ANHYDROUS\SODIUM PHOSPHATE, MONOBASIC, MON
     Indication: Product used for unknown indication
     Dosage: 1 DF, QD
     Route: 048
  9. PRILOSEC [Concomitant]
     Active Substance: OMEPRAZOLE MAGNESIUM
     Indication: Product used for unknown indication
     Dosage: 1 DF, QD
     Route: 048
  10. LIORESAL [Concomitant]
     Active Substance: BACLOFEN
     Indication: Muscle spasms
     Dosage: 1 DF, QD NIGHTLY AS NEEDED
     Route: 048
  11. MOBIC [Concomitant]
     Active Substance: MELOXICAM
     Indication: Product used for unknown indication
     Dosage: 1 DF, QD (15 MG)
     Route: 048
  12. TYLENOL [Concomitant]
     Active Substance: ACETAMINOPHEN
     Indication: Pain
     Route: 048

REACTIONS (3)
  - Musculoskeletal stiffness [Recovered/Resolved]
  - Weight abnormal [Recovered/Resolved]
  - Pain [Unknown]

NARRATIVE: CASE EVENT DATE: 20250526
